FAERS Safety Report 9378963 (Version 2)
Quarter: 2014Q1

REPORT INFORMATION
  Report Type: Report from Study
  Country: CO (occurrence: CO)
  Receive Date: 20130702
  Receipt Date: 20140218
  Transmission Date: 20141002
  Serious: Yes (Other)
  Sender: FDA-Public Use
  Company Number: CO-ROCHE-1243744

PATIENT
  Age: 55 Year
  Sex: Female
  Weight: 65.06 kg

DRUGS (2)
  1. RANIBIZUMAB [Suspect]
     Indication: RETINAL DETACHMENT
     Dosage: 1DF
     Route: 050
     Dates: start: 20120329
  2. TIMOLOL [Concomitant]

REACTIONS (2)
  - Eye haemorrhage [Unknown]
  - Blindness [Unknown]
